FAERS Safety Report 8776971 (Version 2)
Quarter: 2012Q4

REPORT INFORMATION
  Report Type: 
  Country: US (occurrence: US)
  Receive Date: 20120911
  Receipt Date: 20121017
  Transmission Date: 20130627
  Serious: Yes (Other)
  Sender: FDA-Public Use
  Company Number: US-NOVOPROD-359374

PATIENT
  Age: 6 Year
  Sex: Male
  Weight: 22.1 kg

DRUGS (1)
  1. NORDITROPIN FLEXPRO 6.7 MG/ML [Suspect]
     Indication: DWARFISM
     Dosage: 1.1 mg, qd x 6 days per week
     Route: 058
     Dates: start: 200708

REACTIONS (2)
  - Tympanic membrane perforation [Recovered/Resolved]
  - Ear infection [Recovered/Resolved]
